FAERS Safety Report 8909779 (Version 2)
Quarter: 2012Q4

REPORT INFORMATION
  Report Type: 
  Country: PE (occurrence: PE)
  Receive Date: 20121115
  Receipt Date: 20121127
  Transmission Date: 20130627
  Serious: Yes (Hospitalization)
  Sender: FDA-Public Use
  Company Number: PE-PFIZER INC-2012285535

PATIENT
  Age: 64 Year
  Sex: Female

DRUGS (4)
  1. LIPITOR [Suspect]
     Indication: HIGH CHOLESTEROL
     Dosage: 20 mg, UNK
     Route: 048
  2. GLUCOPHAGE [Concomitant]
     Indication: DIABETES MELLITUS
     Dosage: UNK
     Route: 048
  3. EUTIROX [Concomitant]
     Indication: THYROID DISORDER
     Dosage: UNK
     Route: 048
  4. LOSARTAN [Concomitant]
     Indication: HYPERTENSION ARTERIAL
     Dosage: UNK
     Route: 048

REACTIONS (1)
  - Cellulitis [Recovering/Resolving]
